FAERS Safety Report 25106820 (Version 2)
Quarter: 2025Q2

REPORT INFORMATION
  Report Type: Report from Study
  Country: US (occurrence: US)
  Receive Date: 20250321
  Receipt Date: 20250423
  Transmission Date: 20250717
  Serious: Yes (Other)
  Sender: BRISTOL-MYERS SQUIBB COMPANY
  Company Number: US-BRISTOL-MYERS SQUIBB COMPANY-2025-038113

PATIENT
  Age: 50 Year
  Sex: Female
  Weight: 81.69 kg

DRUGS (7)
  1. REVLIMID [Suspect]
     Active Substance: LENALIDOMIDE
     Indication: Follicular lymphoma
     Dosage: ONE D FOR 21 DAYS THEN 7 DAYS OFF
     Route: 048
     Dates: start: 20250210
  2. REVLIMID [Suspect]
     Active Substance: LENALIDOMIDE
     Dosage: TAKE 1 CAPSULE AT BEDTIME ON DAYS 1 THROUGH 21, THEN 7 DAYS OFF ON A 28 DAY?CYCLE
     Route: 048
  3. RITUXAN [Concomitant]
     Active Substance: RITUXIMAB
  4. ACYCLOVIR [Concomitant]
     Active Substance: ACYCLOVIR
  5. ALLOPURINOL [Concomitant]
     Active Substance: ALLOPURINOL
  6. FLUCONAZOLE [Concomitant]
     Active Substance: FLUCONAZOLE
  7. LEVOFLOXACIN [Concomitant]
     Active Substance: LEVOFLOXACIN

REACTIONS (1)
  - Pancytopenia [Recovering/Resolving]

NARRATIVE: CASE EVENT DATE: 20250228
